FAERS Safety Report 16696497 (Version 2)
Quarter: 2019Q3

REPORT INFORMATION
  Report Type: Report from Study
  Country: None (occurrence: US)
  Receive Date: 20190813
  Receipt Date: 20190819
  Transmission Date: 20191004
  Serious: Yes (Hospitalization, Other)
  Sender: FDA-Public Use
  Company Number: US-ABBVIE-19K-163-2881643-00

PATIENT
  Sex: Female
  Weight: 87.62 kg

DRUGS (3)
  1. HUMIRA [Suspect]
     Active Substance: ADALIMUMAB
     Indication: RHEUMATOID ARTHRITIS
     Route: 058
  2. HUMIRA [Suspect]
     Active Substance: ADALIMUMAB
     Indication: RHEUMATOID ARTHRITIS
     Route: 058
     Dates: start: 2015
  3. HUMIRA [Suspect]
     Active Substance: ADALIMUMAB
     Indication: PRODUCT USED FOR UNKNOWN INDICATION
     Dosage: FREQUENCY - OTHER
     Route: 058
     Dates: start: 201903, end: 2019

REACTIONS (9)
  - Headache [Recovered/Resolved]
  - Cardiac pacemaker insertion [Unknown]
  - Taste disorder [Recovered/Resolved]
  - Blood magnesium decreased [Recovered/Resolved]
  - Blood calcium decreased [Recovered/Resolved]
  - Cardiomegaly [Not Recovered/Not Resolved]
  - Complication associated with device [Unknown]
  - Blood potassium decreased [Recovered/Resolved]
  - Cardiac arrest [Recovering/Resolving]

NARRATIVE: CASE EVENT DATE: 2019
